FAERS Safety Report 4506090-X (Version None)
Quarter: 2004Q4

REPORT INFORMATION
  Report Type: 
  Country: None (occurrence: None)
  Receive Date: 20041119
  Receipt Date: 20040907
  Transmission Date: 20050328
  Serious: Yes (Other)
  Sender: FDA-Public Use
  Company Number: PHEH2004US09632

PATIENT
  Age: 57 Year
  Sex: Female
  Weight: 85 kg

DRUGS (25)
  1. GLEEVEC [Suspect]
     Indication: CHRONIC MYELOID LEUKAEMIA
     Dosage: 400 MG, QD
     Route: 048
     Dates: start: 20040520, end: 20040610
  2. GLEEVEC [Suspect]
     Dosage: 300 MG, QD
     Route: 048
     Dates: start: 20040811, end: 20040901
  3. GLEEVEC [Suspect]
     Dosage: 200 MG, QD
     Route: 048
     Dates: start: 20040901, end: 20040903
  4. GLEEVEC [Suspect]
     Dosage: 100 MG, UNK
     Route: 048
     Dates: start: 20040908
  5. GLEEVEC [Suspect]
     Dosage: 200 MG, UNK
     Route: 048
     Dates: start: 20041001, end: 20041101
  6. TRAZODONE HCL [Concomitant]
  7. SYNTHROID [Concomitant]
     Dosage: .175 MG, QD
  8. ZYRTEC [Concomitant]
     Dosage: 10 MG, QD
     Route: 048
  9. ESTROPIPATE [Concomitant]
     Dosage: .625 MG, QD
  10. ACTOS [Concomitant]
     Dosage: 30 MG, QD
  11. PRANDIN [Concomitant]
     Dosage: 2 MG, 1 OR 2, TID
  12. THEO-24 [Concomitant]
     Dosage: 400 MG, QD
  13. ALLOPURINOL [Concomitant]
     Dosage: 300 MG, QD
  14. MULTIVITAMIN [Concomitant]
     Dosage: 1 DAILY
  15. OSCAL [Concomitant]
     Dosage: 500 MG, QD
  16. OXYBUTYNIN [Concomitant]
     Dosage: 5 MG, BID
  17. GLIPIZINE [Concomitant]
     Dosage: 10 MG, BID
  18. FERROUS SULFATE TAB [Concomitant]
     Dosage: 325 MG, BID
  19. TOPAMAX [Concomitant]
     Dosage: 25 MG, BID
  20. POTASSIUM CHLORIDE [Concomitant]
     Dosage: 10 MG, VARIABLE
     Dates: start: 20040908
  21. METOCLOPRAMIDE [Concomitant]
     Dosage: 10 MG, TID
     Dates: start: 20040908
  22. ACETAMINOPHEN AND HYDROCODONE BITARTRATE [Concomitant]
     Dosage: 5/500MG, PRN
     Dates: start: 20040908
  23. GUAIFEN PESR [Concomitant]
     Dosage: UNK, Q12H
  24. AXERT [Concomitant]
     Indication: MIGRAINE
  25. PREVACID [Concomitant]
     Dosage: 30 MG, QD
     Dates: start: 20040925

REACTIONS (10)
  - ANGINA UNSTABLE [None]
  - DIABETES MELLITUS INADEQUATE CONTROL [None]
  - FLUID RETENTION [None]
  - LOCALISED OEDEMA [None]
  - OEDEMA PERIPHERAL [None]
  - PERIORBITAL OEDEMA [None]
  - PITTING OEDEMA [None]
  - WEIGHT INCREASED [None]
  - WHITE BLOOD CELL COUNT DECREASED [None]
  - WHITE BLOOD CELL COUNT INCREASED [None]
